FAERS Safety Report 7277766-9 (Version None)
Quarter: 2011Q1

REPORT INFORMATION
  Report Type: 
  Country: None (occurrence: None)
  Receive Date: 20110207
  Receipt Date: 20100311
  Transmission Date: 20110831
  Serious: No
  Sender: FDA-Public Use
  Company Number: A0849713A

PATIENT
  Age: 40 Year
  Sex: Female

DRUGS (2)
  1. ZINC [Concomitant]
  2. OLUX E FOAM (EMULSION AEROSOL FOAM) [Suspect]
     Indication: DERMATOSIS
     Dosage: 1APP PER DAY
     Route: 061
     Dates: start: 20100120

REACTIONS (3)
  - ACNE [None]
  - SCAR [None]
  - PRODUCT QUALITY ISSUE [None]
